FAERS Safety Report 7258088-9 (Version None)
Quarter: 2011Q1

REPORT INFORMATION
  Report Type: 
  Country: None (occurrence: None)
  Receive Date: 20110129
  Receipt Date: 20100729
  Transmission Date: 20110831
  Serious: No
  Sender: FDA-Public Use
  Company Number: US-ABBOTT-10P-163-0655539-00

PATIENT
  Age: 66 Year
  Sex: Male

DRUGS (4)
  1. PAXIL [Concomitant]
     Indication: PRODUCT USED FOR UNKNOWN INDICATION
     Dosage: DAILY
  2. UNKNOWN OTC INSTEAD OF ASPIRIN [Concomitant]
     Indication: PRODUCT USED FOR UNKNOWN INDICATION
  3. HUMIRA [Suspect]
     Indication: RHEUMATOID ARTHRITIS
     Dates: start: 20100621, end: 20100628
  4. LISINOPRIL [Concomitant]
     Indication: PRODUCT USED FOR UNKNOWN INDICATION
     Dosage: DAILY

REACTIONS (6)
  - TOOTH ABSCESS [None]
  - UPPER EXTREMITY MASS [None]
  - FEELING HOT [None]
  - OEDEMA PERIPHERAL [None]
  - ERYTHEMA [None]
  - ARTHRALGIA [None]
